FAERS Safety Report 8156535-1 (Version None)
Quarter: 2012Q1

REPORT INFORMATION
  Report Type: 
  Country: None (occurrence: None)
  Receive Date: 20120222
  Receipt Date: 20120210
  Transmission Date: 20120608
  Serious: Yes (Other)
  Sender: FDA-Public Use
  Company Number: DE-ACTELION-A-CH2012-60261

PATIENT
  Age: 18 Month

DRUGS (1)
  1. TRACLEER [Suspect]
     Indication: LIPID METABOLISM DISORDER
     Route: 048

REACTIONS (2)
  - LEUKOCYTOCLASTIC VASCULITIS [None]
  - LIP SWELLING [None]
